FAERS Safety Report 8848380 (Version 1)
Quarter: 2012Q4

REPORT INFORMATION
  Report Type: 
  Country: CA (occurrence: CA)
  Receive Date: 20121018
  Receipt Date: 20121018
  Transmission Date: 20130627
  Serious: Yes (Other)
  Sender: FDA-Public Use
  Company Number: PHHY2009CA071400

PATIENT
  Age: 83 Year

DRUGS (1)
  1. SANDOSTATIN LAR [Suspect]
     Dates: start: 20081001

REACTIONS (3)
  - Prostatic specific antigen increased [Unknown]
  - Blood creatinine increased [Unknown]
  - Glomerular filtration rate decreased [Unknown]
